FAERS Safety Report 20135323 (Version 1)
Quarter: 2021Q4

REPORT INFORMATION
  Report Type: Spontaneous
  Country: US (occurrence: US)
  Receive Date: 20211201
  Receipt Date: 20211201
  Transmission Date: 20220303
  Serious: Yes (Hospitalization, Other)
  Sender: FDA-Public Use
  Company Number: US-PFIZER INC-202101620501

PATIENT
  Age: 5 Year
  Sex: Female

DRUGS (7)
  1. CARBOPLATIN [Suspect]
     Active Substance: CARBOPLATIN
     Indication: Medulloblastoma
     Dosage: UNK, CYCLIC
  2. THIOTEPA [Suspect]
     Active Substance: THIOTEPA
     Indication: Medulloblastoma
     Dosage: UNK, CYCLIC
  3. VINCRISTINE [Concomitant]
     Active Substance: VINCRISTINE
     Indication: Medulloblastoma
     Dosage: UNK, CYCLIC (THREE INDUCTION CYCLES)
  4. CISPLATIN [Concomitant]
     Active Substance: CISPLATIN
     Indication: Medulloblastoma
     Dosage: UNK (THREE INDUCTION CYCLES)
  5. CYCLOPHOSPHAMIDE [Concomitant]
     Active Substance: CYCLOPHOSPHAMIDE
     Indication: Medulloblastoma
     Dosage: UNK, CYCLIC (THREE INDUCTION CYCLES)
  6. ETOPOSIDE [Concomitant]
     Active Substance: ETOPOSIDE
     Indication: Medulloblastoma
     Dosage: UNK, CYCLIC (THREE INDUCTION CYCLES)
  7. METHOTREXATE [Concomitant]
     Active Substance: METHOTREXATE
     Indication: Medulloblastoma
     Dosage: UNK, CYCLIC (THREE INDUCTION CYCLES)

REACTIONS (1)
  - Pulmonary arterial hypertension [Recovering/Resolving]
